FAERS Safety Report 24317949 (Version 1)
Quarter: 2024Q3

REPORT INFORMATION
  Report Type: Spontaneous
  Country: GB (occurrence: GB)
  Receive Date: 20240913
  Receipt Date: 20240913
  Transmission Date: 20241017
  Serious: Yes (Hospitalization, Other)
  Sender: SANOFI AVENTIS
  Company Number: GB-SA-2024SA265102

PATIENT

DRUGS (2)
  1. REZUROCK [Suspect]
     Active Substance: BELUMOSUDIL
     Dosage: UNK UNK, QD
  2. REZUROCK [Suspect]
     Active Substance: BELUMOSUDIL
     Dosage: UNK, QOD

REACTIONS (1)
  - Hepatic failure [Unknown]
